FAERS Safety Report 6298179-2 (Version None)
Quarter: 2009Q3

REPORT INFORMATION
  Report Type: 
  Country: None (occurrence: None)
  Receive Date: 20090805
  Receipt Date: 20090730
  Transmission Date: 20100115
  Serious: Yes (Hospitalization, Other)
  Sender: FDA-Public Use
  Company Number: US-AMGEN-QUU356080

PATIENT
  Sex: Female
  Weight: 62.7 kg

DRUGS (5)
  1. ENBREL [Suspect]
     Indication: RHEUMATOID ARTHRITIS
     Route: 058
     Dates: start: 20040927, end: 20080902
  2. CELEBREX [Concomitant]
     Dates: start: 20070917
  3. ZETIA [Concomitant]
     Dates: start: 20060928
  4. SYNTHROID [Concomitant]
     Dates: start: 19950321
  5. PREDNISONE [Concomitant]
     Dates: start: 20070212

REACTIONS (9)
  - BRONCHITIS [None]
  - CHRONIC OBSTRUCTIVE PULMONARY DISEASE [None]
  - DYSPNOEA [None]
  - FLANK PAIN [None]
  - INTERSTITIAL LUNG DISEASE [None]
  - ORGANISING PNEUMONIA [None]
  - PLEURAL EFFUSION [None]
  - PULMONARY FIBROSIS [None]
  - PYREXIA [None]
